FAERS Safety Report 24260546 (Version 1)
Quarter: 2024Q3

REPORT INFORMATION
  Report Type: Report from Study
  Country: US (occurrence: US)
  Receive Date: 20240828
  Receipt Date: 20240828
  Transmission Date: 20241017
  Serious: Yes (Hospitalization)
  Sender: ABBVIE
  Company Number: US-ABBVIE-5896471

PATIENT
  Sex: Female

DRUGS (2)
  1. RINVOQ [Suspect]
     Active Substance: UPADACITINIB
     Indication: Colitis ulcerative
     Dosage: FOR 8 WEEK, LAST ADMIN DATE: 2024
     Route: 048
     Dates: start: 20240502
  2. RINVOQ [Suspect]
     Active Substance: UPADACITINIB
     Indication: Colitis ulcerative
     Dosage: FORM STRENGTH- 30 MG, FIRST ADMIN DATE: 2024
     Route: 048

REACTIONS (6)
  - Defaecation urgency [Unknown]
  - Nausea [Unknown]
  - Pain [Unknown]
  - Haemorrhoids [Unknown]
  - Hypophagia [Unknown]
  - Drug ineffective [Unknown]

NARRATIVE: CASE EVENT DATE: 20240101
